FAERS Safety Report 13210447 (Version 1)
Quarter: 2017Q1

REPORT INFORMATION
  Report Type: Spontaneous
  Country: US (occurrence: US)
  Receive Date: 20170210
  Receipt Date: 20170210
  Transmission Date: 20170428
  Serious: Yes (Hospitalization)
  Sender: FDA-Public Use
  Company Number: US-BAYER-2017-024841

PATIENT
  Age: 82 Year
  Sex: Female
  Weight: 72.56 kg

DRUGS (3)
  1. ULTRAVIST [Suspect]
     Active Substance: IOPROMIDE
     Indication: COMPUTERISED TOMOGRAM ABDOMEN
     Dosage: UNK, ONCE
     Route: 042
     Dates: start: 20170206, end: 20170206
  2. INSULIN [Concomitant]
     Active Substance: INSULIN NOS
  3. READI-CAT [Concomitant]
     Active Substance: BARIUM SULFATE

REACTIONS (1)
  - Nausea [Recovered/Resolved]

NARRATIVE: CASE EVENT DATE: 20170206
